FAERS Safety Report 7789173-0 (Version None)
Quarter: 2011Q3

REPORT INFORMATION
  Report Type: 
  Country: None (occurrence: None)
  Receive Date: 20110930
  Receipt Date: 20110921
  Transmission Date: 20111222
  Serious: Yes (Other)
  Sender: FDA-Public Use
  Company Number: FR-MILLENNIUM PHARMACEUTICALS, INC.-2011-04530

PATIENT

DRUGS (10)
  1. FONDAPARINUX SODIUM [Concomitant]
     Dosage: 2.5 MG, UNK
     Route: 058
     Dates: start: 20110905
  2. FENTANYL [Concomitant]
     Dosage: 12.5 MG, UNK
     Route: 058
     Dates: start: 20110101
  3. VELCADE [Suspect]
     Indication: MULTIPLE MYELOMA
     Dosage: 2.5 MG, UNK
     Route: 065
     Dates: start: 20110725, end: 20110908
  4. DEXAMETHASONE [Suspect]
     Indication: MULTIPLE MYELOMA
     Dosage: 20 MG, UNK
     Route: 065
     Dates: start: 20110725, end: 20110909
  5. REVLIMID [Suspect]
     Indication: MULTIPLE MYELOMA
     Dosage: 25 MG, UNK
     Route: 065
     Dates: start: 20110725, end: 20110909
  6. VALACICLOVIR [Concomitant]
     Dosage: 500 MG, UNK
     Route: 048
     Dates: start: 20110905
  7. CODEINE SULFATE [Concomitant]
     Dosage: 20 UG, UNK
     Route: 048
     Dates: start: 20110101
  8. ACETAMINOPHEN [Concomitant]
     Dosage: 700 UG, UNK
     Route: 048
     Dates: start: 20110101
  9. BACTRIM [Suspect]
     Dosage: 960 MG, UNK
     Route: 048
     Dates: start: 20110905
  10. ZOPICLONE [Concomitant]
     Dosage: 3.75 MG, UNK
     Route: 048
     Dates: start: 20110905

REACTIONS (1)
  - VASCULITIC RASH [None]
